FAERS Safety Report 5634670-7 (Version None)
Quarter: 2008Q1

REPORT INFORMATION
  Report Type: 
  Country: None (occurrence: None)
  Receive Date: 20080222
  Receipt Date: 20080219
  Transmission Date: 20080703
  Serious: Yes (Hospitalization, Other)
  Sender: FDA-Public Use
  Company Number: ES-ASTRAZENECA-2008AC00488

PATIENT
  Age: 62 Year
  Sex: Female

DRUGS (1)
  1. TENORMIN [Suspect]
     Dates: start: 20070610, end: 20070610

REACTIONS (1)
  - CARDIO-RESPIRATORY ARREST [None]
